FAERS Safety Report 9466892 (Version 2)
Quarter: 2013Q3

REPORT INFORMATION
  Report Type: Spontaneous
  Country: US (occurrence: US)
  Receive Date: 20130820
  Receipt Date: 20130828
  Transmission Date: 20140515
  Serious: Yes (Hospitalization, Other)
  Sender: FDA-Public Use
  Company Number: US-BAXTER-2013BAX032251

PATIENT
  Age: 38 Year
  Sex: Male

DRUGS (4)
  1. DIANEAL LOW CALCIUM [Suspect]
     Indication: PERITONEAL DIALYSIS
     Route: 033
     Dates: start: 20110117
  2. DIANEAL LOW CALCIUM [Suspect]
     Indication: PERITONEAL DIALYSIS
     Route: 033
     Dates: start: 20110117
  3. DIANEAL LOW CALCIUM [Suspect]
     Indication: PERITONEAL DIALYSIS
     Route: 033
     Dates: start: 20110117
  4. PREDNISONE [Suspect]
     Indication: SCLERODERMA
     Route: 048

REACTIONS (5)
  - Procedural complication [Recovered/Resolved]
  - Therapy change [Recovered/Resolved]
  - Inappropriate schedule of drug administration [Unknown]
  - Respiratory distress [Recovered/Resolved]
  - Clostridium difficile infection [Recovering/Resolving]
